FAERS Safety Report 25255934 (Version 2)
Quarter: 2025Q2

REPORT INFORMATION
  Report Type: Spontaneous
  Country: JP (occurrence: JP)
  Receive Date: 20250430
  Receipt Date: 20250527
  Transmission Date: 20250716
  Serious: Yes (Life-Threatening)
  Sender: BRACCO
  Company Number: JP-BRACCO-2025JP02462

PATIENT
  Age: 75 Year
  Sex: Male

DRUGS (2)
  1. IOMERON [Suspect]
     Active Substance: IOMEPROL
     Indication: Angiocardiogram
     Dates: start: 20250408, end: 20250408
  2. IOMERON [Suspect]
     Active Substance: IOMEPROL
     Indication: Catheterisation cardiac

REACTIONS (3)
  - Contraindicated product administered [Recovered/Resolved]
  - Blood pressure decreased [Recovered/Resolved]
  - Feeling abnormal [Recovered/Resolved]

NARRATIVE: CASE EVENT DATE: 20250408
